FAERS Safety Report 7083986-9 (Version None)
Quarter: 2010Q4

REPORT INFORMATION
  Report Type: 
  Country: None (occurrence: None)
  Receive Date: 20101104
  Receipt Date: 20100709
  Transmission Date: 20110411
  Serious: No
  Sender: FDA-Public Use
  Company Number: US-ABBOTT-10P-163-0655893-00

PATIENT
  Age: 41 Year
  Sex: Female

DRUGS (3)
  1. KALETRA [Suspect]
     Indication: PRODUCT USED FOR UNKNOWN INDICATION
     Route: 048
     Dates: start: 20100401, end: 20100428
  2. KALETRA [Suspect]
     Route: 048
     Dates: start: 20100409
  3. TENOFOVIR DISOPROXIL FUMARATE + EMTRICITABINE (TRUVADA, TVD) [Suspect]
     Indication: PRODUCT USED FOR UNKNOWN INDICATION
     Route: 048
     Dates: start: 20100401

REACTIONS (1)
  - GESTATIONAL DIABETES [None]
